FAERS Safety Report 16572518 (Version 4)
Quarter: 2020Q1

REPORT INFORMATION
  Report Type: Spontaneous
  Country: US (occurrence: US)
  Receive Date: 20190715
  Receipt Date: 20200116
  Transmission Date: 20200409
  Serious: No
  Sender: FDA-Public Use
  Company Number: US-SA-2019SA120025

PATIENT
  Age: 61 Year
  Sex: Female
  Weight: 58 kg

DRUGS (4)
  1. REPATHA [Concomitant]
     Active Substance: EVOLOCUMAB
     Dosage: 140 MG, BIM
     Dates: start: 201610, end: 201904
  2. PRALUENT [Suspect]
     Active Substance: ALIROCUMAB
     Dosage: 150 MG, QOW
     Route: 058
     Dates: start: 20190426, end: 20190719
  3. LASIX [Concomitant]
     Active Substance: FUROSEMIDE
     Indication: OEDEMA
  4. LASIX [Concomitant]
     Active Substance: FUROSEMIDE

REACTIONS (9)
  - Condition aggravated [Recovering/Resolving]
  - Hyperhidrosis [Unknown]
  - Muscle spasms [Recovering/Resolving]
  - Pain in extremity [Unknown]
  - Crying [Unknown]
  - Gait disturbance [Unknown]
  - Oedema peripheral [Recovering/Resolving]
  - Productive cough [Unknown]
  - Skin discolouration [Recovering/Resolving]
